FAERS Safety Report 23673540 (Version 2)
Quarter: 2025Q1

REPORT INFORMATION
  Report Type: Spontaneous
  Country: JP (occurrence: JP)
  Receive Date: 20240326
  Receipt Date: 20250211
  Transmission Date: 20250409
  Serious: Yes (Other)
  Sender: CLINIGEN
  Company Number: JP-CLINIGEN-JP-CLI-2024-009736

PATIENT

DRUGS (3)
  1. DEXRAZOXANE [Suspect]
     Active Substance: DEXRAZOXANE
     Indication: Infusion site extravasation
     Route: 041
  2. DEXRAZOXANE [Suspect]
     Active Substance: DEXRAZOXANE
     Route: 041
  3. DAUNORUBICIN HYDROCHLORIDE [Concomitant]
     Active Substance: DAUNORUBICIN HYDROCHLORIDE
     Indication: B precursor type acute leukaemia
     Route: 041

REACTIONS (2)
  - Off label use [Unknown]
  - Pleural effusion [Recovered/Resolved]
